FAERS Safety Report 6069060-9 (Version None)
Quarter: 2009Q1

REPORT INFORMATION
  Report Type: 
  Country: None (occurrence: None)
  Receive Date: 20090206
  Receipt Date: 20090128
  Transmission Date: 20090719
  Serious: Yes (Life-Threatening)
  Sender: FDA-Public Use
  Company Number: JP-ROCHE-604889

PATIENT
  Sex: Male
  Weight: 51 kg

DRUGS (1)
  1. XELODA [Suspect]
     Indication: RECTAL CANCER
     Dosage: DRUG REPORTED AS XELODA 300
     Route: 048
     Dates: start: 20080901, end: 20081118

REACTIONS (6)
  - ANOREXIA [None]
  - DEHYDRATION [None]
  - INTESTINAL OBSTRUCTION [None]
  - SMALL INTESTINE ULCER [None]
  - STOMATITIS [None]
  - WEIGHT DECREASED [None]
